FAERS Safety Report 24832913 (Version 1)
Quarter: 2025Q1

REPORT INFORMATION
  Report Type: Spontaneous
  Country: US (occurrence: US)
  Receive Date: 20250111
  Receipt Date: 20250111
  Transmission Date: 20250409
  Serious: No
  Sender: ABBVIE
  Company Number: US-ABBVIE-6079646

PATIENT
  Age: 30 Year
  Sex: Male
  Weight: 84 kg

DRUGS (3)
  1. HUMIRA [Suspect]
     Active Substance: ADALIMUMAB
     Indication: Crohn^s disease
     Dosage: FORM STRENGTH: 40 MILLIGRAM
     Route: 058
     Dates: start: 202408
  2. DEPAKOTE [Concomitant]
     Active Substance: DIVALPROEX SODIUM
     Indication: Bipolar disorder
  3. SEROQUEL [Concomitant]
     Active Substance: QUETIAPINE FUMARATE
     Indication: Insomnia

REACTIONS (10)
  - Constipation [Recovering/Resolving]
  - Serum ferritin decreased [Recovered/Resolved]
  - Injection site papule [Recovered/Resolved]
  - Vitamin D decreased [Not Recovered/Not Resolved]
  - Haemorrhoids [Recovered/Resolved]
  - Proctalgia [Recovered/Resolved]
  - Injection site erythema [Recovered/Resolved]
  - Liver function test increased [Not Recovered/Not Resolved]
  - Faecal calprotectin increased [Not Recovered/Not Resolved]
  - Injection site haemorrhage [Recovered/Resolved]

NARRATIVE: CASE EVENT DATE: 20240801
